FAERS Safety Report 7433212-3 (Version None)
Quarter: 2011Q2

REPORT INFORMATION
  Report Type: 
  Country: None (occurrence: None)
  Receive Date: 20110422
  Receipt Date: 20110419
  Transmission Date: 20111010
  Serious: Yes (Death, Other)
  Sender: FDA-Public Use
  Company Number: PHHY2004DE02240

PATIENT
  Sex: Female

DRUGS (6)
  1. CYNT [Concomitant]
     Dosage: 0.2 UG, UNK
  2. ENALAPRIL MALEATE [Concomitant]
     Indication: HYPERTENSION
  3. SANDOSTATIN LAR [Suspect]
     Indication: PANCREATIC NEUROENDOCRINE TUMOUR
     Dosage: 20 MG, QMO
     Dates: start: 20010129, end: 20040924
  4. BELOC ZOK [Concomitant]
     Indication: HYPERTENSION
  5. ESIDRIX [Concomitant]
     Indication: CARDIAC FAILURE
  6. AMARYL [Concomitant]
     Indication: DIABETES MELLITUS
     Dosage: 1 MG, UNK

REACTIONS (8)
  - DEATH [None]
  - CHOLELITHIASIS [None]
  - VOMITING [None]
  - NEOPLASM MALIGNANT [None]
  - STENT MALFUNCTION [None]
  - STREPTOCOCCAL INFECTION [None]
  - BILE DUCT OBSTRUCTION [None]
  - DIARRHOEA [None]
